FAERS Safety Report 6428464-2 (Version None)
Quarter: 2009Q4

REPORT INFORMATION
  Report Type: 
  Country: None (occurrence: None)
  Receive Date: 20091104
  Receipt Date: 20091104
  Transmission Date: 20100525
  Serious: Yes (Hospitalization)
  Sender: FDA-Public Use
  Company Number: None

PATIENT

DRUGS (1)
  1. HYDROMORPHONE [Suspect]
     Indication: PAIN
     Dosage: 4 MG OTHER IV
     Route: 042
     Dates: start: 20090703, end: 20090731

REACTIONS (3)
  - CONFUSIONAL STATE [None]
  - RESPIRATORY DEPRESSION [None]
  - VISION BLURRED [None]
